FAERS Safety Report 6241749-8 (Version None)
Quarter: 2009Q2

REPORT INFORMATION
  Report Type: 
  Country: None (occurrence: None)
  Receive Date: 20090623
  Receipt Date: 20080625
  Transmission Date: 20091009
  Serious: Yes (Hospitalization, Other)
  Sender: FDA-Public Use
  Company Number: JP-ROCHE-428089

PATIENT
  Age: 5 Year
  Sex: Female

DRUGS (11)
  1. CELLCEPT [Suspect]
     Route: 065
  2. RITUXIMAB [Suspect]
     Route: 065
  3. GANCICLOVIR [Suspect]
     Indication: DRUG USE FOR UNKNOWN INDICATION
     Route: 065
  4. TACROLIMUS [Suspect]
     Route: 065
     Dates: end: 20050228
  5. TACROLIMUS [Suspect]
     Route: 065
  6. TACROLIMUS [Suspect]
     Dosage: DECREASED DOSE
     Route: 065
     Dates: start: 20050228
  7. PREDNISOLONE [Suspect]
     Route: 065
  8. VINCRISTINE [Concomitant]
  9. CYCLOPHOSPHAMIDE [Concomitant]
  10. PIRARUBICIN [Concomitant]
  11. CISPLATIN [Concomitant]

REACTIONS (6)
  - CARDIAC HYPERTROPHY [None]
  - EPSTEIN-BARR VIRUS ASSOCIATED LYMPHOPROLIFERATIVE DISORDER [None]
  - EPSTEIN-BARR VIRUS TEST POSITIVE [None]
  - LARYNGEAL NEOPLASM [None]
  - OTITIS MEDIA [None]
  - TONSILLITIS [None]
